FAERS Safety Report 21838077 (Version 1)
Quarter: 2023Q1

REPORT INFORMATION
  Report Type: Spontaneous
  Country: US (occurrence: None)
  Receive Date: 20230107
  Receipt Date: 20230107
  Transmission Date: 20230418
  Serious: Yes (Death, Life-Threatening, Hospitalization)
  Sender: FDA-Public Use
  Company Number: None

PATIENT
  Age: 81 Year
  Sex: Female
  Weight: 96.3 kg

DRUGS (15)
  1. ENTRESTO [Suspect]
     Active Substance: SACUBITRIL\VALSARTAN
     Indication: Cardiac failure congestive
     Dosage: FREQUENCY : TWICE A DAY;?
     Route: 048
     Dates: start: 20221206, end: 20221206
  2. DIGOXIN [Concomitant]
     Active Substance: DIGOXIN
  3. SPIRONOLACTONE [Concomitant]
     Active Substance: SPIRONOLACTONE
  4. INSULIN NOS [Concomitant]
     Active Substance: INSULIN NOS
  5. RIVAROXABAN [Concomitant]
     Active Substance: RIVAROXABAN
  6. SITAGLIPTIN [Concomitant]
     Active Substance: SITAGLIPTIN
  7. EMPAGLIFLOZIN [Concomitant]
     Active Substance: EMPAGLIFLOZIN
  8. ASPIRIN [Concomitant]
     Active Substance: ASPIRIN
  9. ZONISAMIDE [Concomitant]
     Active Substance: ZONISAMIDE
  10. ROPINIROLE [Concomitant]
     Active Substance: ROPINIROLE
  11. QUETIAPINE [Concomitant]
     Active Substance: QUETIAPINE
  12. ATORVASTATIN [Concomitant]
     Active Substance: ATORVASTATIN
  13. DILTIAZEM [Concomitant]
     Active Substance: DILTIAZEM
  14. FUROSEMIDE [Concomitant]
     Active Substance: FUROSEMIDE
  15. LEVOTHYROXINE [Concomitant]
     Active Substance: LEVOTHYROXINE

REACTIONS (6)
  - Hypotension [None]
  - Lethargy [None]
  - Cold sweat [None]
  - Blood lactic acid increased [None]
  - Blood creatinine increased [None]
  - Haemodialysis [None]

NARRATIVE: CASE EVENT DATE: 20221206
